FAERS Safety Report 7789203-6 (Version None)
Quarter: 2011Q3

REPORT INFORMATION
  Report Type: 
  Country: None (occurrence: None)
  Receive Date: 20110930
  Receipt Date: 20110926
  Transmission Date: 20111222
  Serious: Yes (Other)
  Sender: FDA-Public Use
  Company Number: BE-PFIZER INC-2011229200

PATIENT
  Sex: Female

DRUGS (1)
  1. ECALTA [Suspect]

REACTIONS (1)
  - PLATELET COUNT INCREASED [None]
